FAERS Safety Report 15146404 (Version 1)
Quarter: 2018Q3

REPORT INFORMATION
  Report Type: Spontaneous
  Country: ES (occurrence: ES)
  Receive Date: 20180715
  Receipt Date: 20180715
  Transmission Date: 20181010
  Serious: Yes (Hospitalization, Other)
  Sender: FDA-Public Use
  Company Number: ES-SHIRE-ES201825466

PATIENT

DRUGS (5)
  1. GABAPENTINA [Suspect]
     Active Substance: GABAPENTIN
     Indication: DRUG ABUSER
     Route: 048
     Dates: start: 20170922, end: 20180105
  2. HIDROXIL [Concomitant]
     Active Substance: ALUMINUM HYDROXIDE
     Indication: DRUG ABUSER
     Route: 048
     Dates: start: 20170922, end: 20180105
  3. ELVANSE [Suspect]
     Active Substance: LISDEXAMFETAMINE DIMESYLATE
     Indication: ATTENTION DEFICIT/HYPERACTIVITY DISORDER
     Dosage: 30 MG, 1X/DAY:QD
     Route: 048
     Dates: start: 20171123, end: 20180105
  4. QUETIAPINE. [Suspect]
     Active Substance: QUETIAPINE
     Indication: DRUG ABUSER
     Dosage: 150 MG, 1X/DAY:QD
     Route: 048
     Dates: start: 20171025, end: 20180105
  5. ANTABUS [Suspect]
     Active Substance: DISULFIRAM
     Indication: DRUG ABUSER
     Dosage: 250 MG, 1X/DAY:QD
     Route: 048
     Dates: start: 20171026, end: 20180105

REACTIONS (2)
  - Hyperbilirubinaemia [Unknown]
  - Hepatitis [Recovering/Resolving]

NARRATIVE: CASE EVENT DATE: 20180106
